FAERS Safety Report 5921271-6 (Version None)
Quarter: 2008Q4

REPORT INFORMATION
  Report Type: 
  Country: None (occurrence: None)
  Receive Date: 20081014
  Receipt Date: 20080930
  Transmission Date: 20090506
  Serious: Yes (Hospitalization)
  Sender: FDA-Public Use
  Company Number: 2008-00704

PATIENT
  Age: 65 Year
  Sex: Male
  Weight: 73 kg

DRUGS (32)
  1. VELCADE [Suspect]
     Indication: MULTIPLE MYELOMA
     Dosage: 2.10 MG, INTRAVENOUS; 1.6 MEQ, INTRAVENOUS
     Route: 042
     Dates: start: 20071109, end: 20071210
  2. VELCADE [Suspect]
     Indication: MULTIPLE MYELOMA
     Dosage: 2.10 MG, INTRAVENOUS; 1.6 MEQ, INTRAVENOUS
     Route: 042
     Dates: start: 20080201, end: 20080331
  3. DEXAMETHASONE TAB [Suspect]
     Indication: MULTIPLE MYELOMA
     Dosage: 20 MG, INTRAVENOUS; 20 MG, ORAL
     Dates: start: 20071109, end: 20071113
  4. DEXAMETHASONE TAB [Suspect]
     Indication: MULTIPLE MYELOMA
     Dosage: 20 MG, INTRAVENOUS; 20 MG, ORAL
     Dates: start: 20071116, end: 20080325
  5. SELBEX (TEPRENONE) [Concomitant]
  6. WARFARIN POTASSIUM (WARFARIN POTASSIUM) [Concomitant]
  7. BUCOLOME (BUCOLOME) [Concomitant]
  8. BISOPROLOL FUMARATE [Concomitant]
  9. ALLOPURINOL [Concomitant]
  10. PURSENNID (SENNA LEAF) [Concomitant]
  11. MAGNESIUM OXIDE (MAGNESIUM OXIDE) [Concomitant]
  12. LACTULOSE [Concomitant]
  13. NOVAMIN (PROCHLORPERAZINE) [Concomitant]
  14. DIGOXIN [Concomitant]
  15. MORPHINE [Concomitant]
  16. ELCITONIN (ELCATONIN) [Concomitant]
  17. AMINOLEBAN (AMINO ACIDS NOS) [Concomitant]
  18. LASIX [Concomitant]
  19. NOVORAPID (INSULIN ASPART) [Concomitant]
  20. ZOMETA [Concomitant]
  21. ZOVIRAX [Concomitant]
  22. DIFLUCAN [Concomitant]
  23. SULFAMETHOXAZOLE AND TRIMETHOPRIM [Concomitant]
  24. FENTANYL-100 [Concomitant]
  25. TRAZODONE HCL [Concomitant]
  26. CELECOXIB [Concomitant]
  27. SERUMATE (OXAZOLAM) [Concomitant]
  28. VITAMEDIN [Concomitant]
  29. FAMOTIDINE [Concomitant]
  30. PARIET (RABEPRAZOLE SODIUM) [Concomitant]
  31. CLOSTRIDIUM BUTYRICUM (CLOSTRIDIUM BUTYRICUM) [Concomitant]
  32. KALIMATE (CALCIUM POLYSTYRENE SULFONATE) [Concomitant]

REACTIONS (21)
  - ASPARTATE AMINOTRANSFERASE INCREASED [None]
  - BLOOD CHLORIDE INCREASED [None]
  - BLOOD LACTATE DEHYDROGENASE [None]
  - CARDIAC FAILURE [None]
  - CLAVICLE FRACTURE [None]
  - CONDITION AGGRAVATED [None]
  - CORONARY ARTERY STENOSIS [None]
  - DIARRHOEA [None]
  - HUMERUS FRACTURE [None]
  - HYPERKALAEMIA [None]
  - HYPERNATRAEMIA [None]
  - HYPERPHOSPHATASAEMIA [None]
  - HYPOAESTHESIA [None]
  - HYPOPROTEINAEMIA [None]
  - MYOCARDITIS [None]
  - ORTHOSTATIC HYPOTENSION [None]
  - PATHOLOGICAL FRACTURE [None]
  - PLATELET COUNT DECREASED [None]
  - PULMONARY HYPERTENSION [None]
  - RENAL DISORDER [None]
  - TACHYCARDIA [None]
